FAERS Safety Report 8921115 (Version 1)
Quarter: 2012Q4

REPORT INFORMATION
  Report Type: 
  Country: SE (occurrence: SE)
  Receive Date: 20121121
  Receipt Date: 20121121
  Transmission Date: 20130627
  Serious: Yes (Hospitalization)
  Sender: FDA-Public Use
  Company Number: SE-PFIZER INC-2012288390

PATIENT
  Age: 64 Year
  Sex: Female
  Weight: 82.4 kg

DRUGS (18)
  1. GENOTROPIN [Suspect]
     Dosage: 0.53 mg, 1x/day,7 injections/week
     Route: 058
     Dates: start: 19990517
  2. CORTISONE ACETATE [Concomitant]
     Indication: ACTH DECREASED
     Dosage: UNK
     Dates: start: 19860101
  3. CYCLABIL [Concomitant]
     Indication: LUTEINISING HORMONE DEFICIENCY
     Dosage: UNK
     Dates: start: 19860101
  4. CYCLABIL [Concomitant]
     Indication: FOLLICLE-STIMULATING HORMONE DEFICIENCY
  5. CYCLABIL [Concomitant]
     Indication: OVARIAN DISORDER
  6. CYCLABIL [Concomitant]
     Indication: HYPOGONADISM
  7. DESMOPRESSIN [Concomitant]
     Indication: ADH DECREASED
     Dosage: UNK
     Dates: start: 19860101
  8. LEVOTHYROXINE [Concomitant]
     Indication: THYROID DISORDER
     Dosage: UNK
     Dates: start: 19860101
  9. LEVOTHYROXINE [Concomitant]
     Indication: PRIMARY HYPOTHYROIDISM
  10. ESTRADIOL [Concomitant]
     Indication: LUTEINISING HORMONE DEFICIENCY
     Dosage: UNK
     Dates: start: 19970123
  11. ESTRADIOL [Concomitant]
     Indication: FOLLICLE-STIMULATING HORMONE DEFICIENCY
  12. ESTRADIOL [Concomitant]
     Indication: OVARIAN DISORDER
  13. ESTRADIOL [Concomitant]
     Indication: HYPOGONADISM
  14. NORETHISTERONE [Concomitant]
     Indication: LUTEINISING HORMONE DEFICIENCY
     Dosage: UNK
     Dates: start: 19970123
  15. NORETHISTERONE [Concomitant]
     Indication: FOLLICLE-STIMULATING HORMONE DEFICIENCY
  16. NORETHISTERONE [Concomitant]
     Indication: OVARIAN DISORDER
  17. NORETHISTERONE [Concomitant]
     Indication: HYPOGONADISM
  18. TIPAROL [Concomitant]
     Indication: PAIN
     Dosage: UNK
     Dates: start: 20090101

REACTIONS (1)
  - Nasopharyngitis [Unknown]
